FAERS Safety Report 15448556 (Version 2)
Quarter: 2018Q4

REPORT INFORMATION
  Report Type: Spontaneous
  Country: JP (occurrence: JP)
  Receive Date: 20180929
  Receipt Date: 20181019
  Transmission Date: 20190204
  Serious: Yes (Other)
  Sender: FDA-Public Use
  Company Number: JP-UCBSA-2018043526

PATIENT
  Age: 16 Year
  Sex: Male

DRUGS (4)
  1. VIMPAT [Suspect]
     Active Substance: LACOSAMIDE
     Dosage: 50 MG, ONCE DAILY (QD)
     Route: 048
     Dates: start: 20180207, end: 20180213
  2. VIMPAT [Suspect]
     Active Substance: LACOSAMIDE
     Indication: EPILEPSY
     Dosage: 50 MG, 2X/DAY (BID)
     Route: 048
     Dates: start: 20171204, end: 20180124
  3. VIMPAT [Suspect]
     Active Substance: LACOSAMIDE
     Dosage: 50 MG, 2X/DAY (BID)
     Route: 048
     Dates: start: 20180131, end: 20180206
  4. VIMPAT [Suspect]
     Active Substance: LACOSAMIDE
     Dosage: 100 MG, 2X/DAY (BID)
     Route: 048
     Dates: start: 20180125, end: 20180130

REACTIONS (1)
  - Epilepsy [Recovered/Resolved]

NARRATIVE: CASE EVENT DATE: 20180129
